FAERS Safety Report 9042284 (Version 1)
Quarter: 2013Q1

REPORT INFORMATION
  Report Type: Report from Study
  Country: US (occurrence: US)
  Receive Date: 20130129
  Receipt Date: 20130129
  Transmission Date: 20140127
  Serious: No
  Sender: FDA-Public Use
  Company Number: US-ABBOTT-12P-163-0909038-00

PATIENT
  Sex: Female

DRUGS (10)
  1. HUMIRA 40 MG/0.8 ML PEN [Suspect]
     Indication: FIBROMYALGIA
     Dates: start: 201201
  2. CLONAZEPAM [Concomitant]
     Indication: DEPRESSION
     Dosage: 1 MG DAILY
  3. CYMBALTA [Concomitant]
     Indication: DEPRESSION
     Dosage: 60 MG DAILY
  4. NEXIUM [Concomitant]
     Indication: GASTROOESOPHAGEAL REFLUX DISEASE
     Dosage: 40 MG DAILY
  5. SYNTHROID [Concomitant]
     Indication: HYPOTHYROIDISM
     Dosage: 125 MCG DAILY
  6. OXYCODONE [Concomitant]
     Indication: FIBROMYALGIA
     Dosage: 3 TABS DAILY
  7. PERCOCET [Concomitant]
     Indication: FIBROMYALGIA
     Dosage: AS REQURIED, MAYBE 1-2 TIMES A MONTH
  8. PREMARIN [Concomitant]
     Indication: POSTMENOPAUSE
     Dosage: 1.25 MG DAILY
  9. PRECREA [Concomitant]
     Indication: TYPE 2 DIABETES MELLITUS
  10. RESTASIS [Concomitant]
     Indication: DRY EYE
     Dosage: BOTH EYES DAILY
     Route: 047

REACTIONS (11)
  - Injection site reaction [Not Recovered/Not Resolved]
  - Injection site reaction [Unknown]
  - Injection site reaction [Unknown]
  - Injection site pain [Unknown]
  - Injection site bruising [Not Recovered/Not Resolved]
  - Device malfunction [Unknown]
  - Injection site rash [Unknown]
  - Injection site pruritus [Unknown]
  - Injection site erythema [Unknown]
  - Injection site rash [Unknown]
  - Injection site pruritus [Unknown]
